FAERS Safety Report 19212304 (Version 5)
Quarter: 2021Q4

REPORT INFORMATION
  Report Type: Report from Study
  Country: US (occurrence: US)
  Receive Date: 20210504
  Receipt Date: 20211102
  Transmission Date: 20220304
  Serious: Yes (Hospitalization)
  Sender: FDA-Public Use
  Company Number: US-PFIZER INC-2019420303

PATIENT
  Age: 7 Year
  Sex: Female
  Weight: 24.1 kg

DRUGS (9)
  1. PALBOCICLIB [Suspect]
     Active Substance: PALBOCICLIB
     Indication: Nephroblastoma
     Dosage: 75 MG/M2, ONCE DAILY (DAYS 1-14 OF 21 DAY CYCLE)
     Route: 048
     Dates: start: 20190819, end: 20190922
  2. IRINOTECAN HYDROCHLORIDE [Suspect]
     Active Substance: IRINOTECAN HYDROCHLORIDE
     Indication: Nephroblastoma
     Dosage: 44 MG, ONCE DAILY (DAYS 1-5 OF 21 DAY CYCLE)
     Route: 042
     Dates: start: 20190819, end: 20190913
  3. TEMOZOLOMIDE [Suspect]
     Active Substance: TEMOZOLOMIDE
     Indication: Nephroblastoma
     Dosage: 90 MG, ONCE DAILY (DAYS 1-5 OF 21 DAY CYCLE)
     Route: 048
     Dates: start: 20190819, end: 20190913
  4. CEFIXIME [Concomitant]
     Active Substance: CEFIXIME
     Indication: Antifungal prophylaxis
     Dosage: UNK
     Dates: start: 20190817
  5. ZYPREXA [Concomitant]
     Active Substance: OLANZAPINE
     Indication: Nausea
     Dosage: UNK, AS NEEDED (PRN)
     Dates: start: 20190819
  6. ZYPREXA [Concomitant]
     Active Substance: OLANZAPINE
     Indication: Vomiting
  7. LORAZEPAM [Concomitant]
     Active Substance: LORAZEPAM
     Indication: Nausea
     Dosage: UNK
     Dates: start: 20190819
  8. LORAZEPAM [Concomitant]
     Active Substance: LORAZEPAM
     Indication: Vomiting
  9. LIDOCAINE [Concomitant]
     Active Substance: LIDOCAINE
     Indication: Anaesthesia
     Dosage: UNK
     Dates: start: 20190819

REACTIONS (1)
  - Shock [Recovered/Resolved]

NARRATIVE: CASE EVENT DATE: 20190924
